FAERS Safety Report 23531255 (Version 1)
Quarter: 2024Q1

REPORT INFORMATION
  Report Type: Report from Study
  Country: US (occurrence: US)
  Receive Date: 20240216
  Receipt Date: 20240216
  Transmission Date: 20240409
  Serious: Yes (Hospitalization, Other)
  Sender: FDA-Public Use
  Company Number: US-GILEAD-2024-0662242

PATIENT
  Age: 40 Year
  Sex: Male

DRUGS (1)
  1. AZTREONAM LYSINE [Suspect]
     Active Substance: AZTREONAM LYSINE
     Indication: Cystic fibrosis
     Dosage: 75 MG, INHALE 1 ML IN THE LUNGS THREE TIMES DAILY FOR 28 DAYS ON AND THEN 28 DAYS OFF
     Route: 055
     Dates: start: 20231101

REACTIONS (2)
  - Pneumonia [Unknown]
  - Influenza [Unknown]
